FAERS Safety Report 7751426-X (Version None)
Quarter: 2011Q3

REPORT INFORMATION
  Report Type: 
  Country: None (occurrence: None)
  Receive Date: 20110914
  Receipt Date: 20110829
  Transmission Date: 20111222
  Serious: Yes (Other)
  Sender: FDA-Public Use
  Company Number: US-GENENTECH-324143

PATIENT
  Age: 53 Year
  Sex: Male

DRUGS (2)
  1. RITUXAN [Suspect]
     Indication: PRODUCT USED FOR UNKNOWN INDICATION
     Dosage: UNK
     Route: 065
  2. MYCOPHENOLATE MOFETIL (CELLCEPT) [Suspect]
     Indication: NEUROMYELITIS OPTICA
     Dosage: 500 MG, Q2W
     Route: 042

REACTIONS (1)
  - NEPHROLITHIASIS [None]
